FAERS Safety Report 10963181 (Version 4)
Quarter: 2015Q2

REPORT INFORMATION
  Report Type: Report from Study
  Country: CA (occurrence: CA)
  Receive Date: 20150327
  Receipt Date: 20150501
  Transmission Date: 20150821
  Serious: Yes (Hospitalization)
  Sender: FDA-Public Use
  Company Number: CA-ABBVIE-15K-028-1367151-00

PATIENT
  Age: 53 Year
  Sex: Male

DRUGS (2)
  1. HUMIRA [Suspect]
     Active Substance: ADALIMUMAB
     Indication: COLITIS ULCERATIVE
     Route: 058
     Dates: start: 20110524
  2. HUMIRA [Suspect]
     Active Substance: ADALIMUMAB
     Route: 058

REACTIONS (16)
  - Fatigue [Not Recovered/Not Resolved]
  - Gastrointestinal motility disorder [Unknown]
  - Proctitis [Unknown]
  - Hepatic neoplasm [Not Recovered/Not Resolved]
  - Haemangioma [Unknown]
  - Viral infection [Recovered/Resolved]
  - Haematochezia [Unknown]
  - Intestinal mucosal hypertrophy [Unknown]
  - Renal cyst [Not Recovered/Not Resolved]
  - Cyst [Not Recovered/Not Resolved]
  - Abdominal pain [Unknown]
  - Localised intraabdominal fluid collection [Not Recovered/Not Resolved]
  - Haemorrhoids [Unknown]
  - Hypothermia [Recovered/Resolved]
  - Malaise [Recovered/Resolved]
  - Nephrolithiasis [Not Recovered/Not Resolved]

NARRATIVE: CASE EVENT DATE: 201503
